FAERS Safety Report 5718653-4 (Version None)
Quarter: 2008Q2

REPORT INFORMATION
  Report Type: 
  Country: None (occurrence: None)
  Receive Date: 20080425
  Receipt Date: 20080415
  Transmission Date: 20081010
  Serious: Yes (Other)
  Sender: FDA-Public Use
  Company Number: US-PFIZER INC-2008032365

PATIENT
  Sex: Female
  Weight: 127 kg

DRUGS (2)
  1. LYRICA [Suspect]
     Indication: FIBROMYALGIA
     Route: 048
  2. TYLOX [Concomitant]

REACTIONS (4)
  - DIZZINESS [None]
  - EPISTAXIS [None]
  - FEELING ABNORMAL [None]
  - HYPERTENSION [None]
